FAERS Safety Report 5661422-4 (Version None)
Quarter: 2008Q1

REPORT INFORMATION
  Report Type: 
  Country: None (occurrence: None)
  Receive Date: 20080311
  Receipt Date: 20080228
  Transmission Date: 20080703
  Serious: Yes (Other)
  Sender: FDA-Public Use
  Company Number: US-PFIZER INC-2008020069

PATIENT
  Sex: Female
  Weight: 81.818 kg

DRUGS (2)
  1. CHANTIX [Suspect]
     Indication: SMOKING CESSATION THERAPY
  2. NICOTINE [Concomitant]

REACTIONS (3)
  - CONSTIPATION [None]
  - SURGERY [None]
  - VOMITING [None]
